FAERS Safety Report 9177148 (Version 3)
Quarter: 2013Q2

REPORT INFORMATION
  Report Type: Spontaneous
  Country: JP (occurrence: JP)
  Receive Date: 20130321
  Receipt Date: 20130409
  Transmission Date: 20140414
  Serious: Yes (Other)
  Sender: FDA-Public Use
  Company Number: JP-EISAI INC-E2020-12098-SPO-JP

PATIENT
  Age: 88 Year
  Sex: Male

DRUGS (16)
  1. ARICEPT [Suspect]
     Indication: DEMENTIA ALZHEIMER^S TYPE
     Route: 048
  2. ARICEPT [Suspect]
     Route: 048
     Dates: end: 20130227
  3. ARICEPT [Suspect]
     Route: 048
     Dates: start: 20130228, end: 20130308
  4. ALOSENN [Concomitant]
     Indication: PRODUCT USED FOR UNKNOWN INDICATION
     Dosage: UNKNOWN
     Dates: start: 20130228
  5. UNISIA [Concomitant]
     Indication: PRODUCT USED FOR UNKNOWN INDICATION
     Dosage: UNKNOWN
     Dates: start: 20130228
  6. BAYASPIRIN [Concomitant]
     Indication: PRODUCT USED FOR UNKNOWN INDICATION
     Dates: start: 20130228
  7. ISORBIDE DINITRATE [Concomitant]
     Indication: PRODUCT USED FOR UNKNOWN INDICATION
     Dosage: UNKNOWN
     Dates: start: 20130228
  8. MAGNESIUM OXIDE [Concomitant]
     Indication: PRODUCT USED FOR UNKNOWN INDICATION
     Dosage: UNKNOWN
     Dates: start: 20130228
  9. EPADEL [Concomitant]
     Indication: PRODUCT USED FOR UNKNOWN INDICATION
     Dosage: UNKNOWN
     Dates: start: 20130228
  10. ASVERIN (TIPEPIDINE HIBENZATE) [Concomitant]
     Indication: NASOPHARYNGITIS
     Dosage: UNKNOWN
     Dates: start: 20130306
  11. CARBOCISTEINE [Concomitant]
     Indication: NASOPHARYNGITIS
     Dosage: UNKNOWN
     Dates: start: 20130306
  12. TALION [Concomitant]
     Indication: NASOPHARYNGITIS
     Dosage: UNKNOWN
     Dates: start: 20130306
  13. GENINAX [Concomitant]
     Indication: NASOPHARYNGITIS
     Dosage: UNKNOWN
     Dates: start: 20130306
  14. KIPRES [Concomitant]
     Indication: COUGH
     Dosage: UNKNOWN
     Dates: start: 20130308
  15. AMBROXOL HYDROCHLORIDE [Concomitant]
     Indication: COUGH
     Dosage: UNKNOWN
     Dates: start: 20130308
  16. TULOBUTEROL [Concomitant]
     Indication: COUGH
     Dates: start: 20130308

REACTIONS (2)
  - White blood cell count decreased [Recovered/Resolved]
  - Platelet count decreased [Recovered/Resolved]
